FAERS Safety Report 6707448-0 (Version None)
Quarter: 2010Q2

REPORT INFORMATION
  Report Type: 
  Country: None (occurrence: None)
  Receive Date: 20100503
  Receipt Date: 20090914
  Transmission Date: 20101027
  Serious: No
  Sender: FDA-Public Use
  Company Number: US-ASTRAZENECA-2009SE13330

PATIENT
  Age: 20446 Day
  Sex: Female
  Weight: 91.6 kg

DRUGS (4)
  1. NEXIUM [Suspect]
     Indication: GASTROOESOPHAGEAL REFLUX DISEASE
     Route: 048
     Dates: start: 20090821
  2. ZOCOR [Concomitant]
  3. ASPIRIN [Concomitant]
  4. POTASSIUM [Concomitant]

REACTIONS (3)
  - ABDOMINAL DISTENSION [None]
  - CHEST DISCOMFORT [None]
  - ERUCTATION [None]
